FAERS Safety Report 10681016 (Version 4)
Quarter: 2015Q2

REPORT INFORMATION
  Report Type: Report from Study
  Country: US (occurrence: US)
  Receive Date: 20141229
  Receipt Date: 20150424
  Transmission Date: 20150821
  Serious: Yes (Other)
  Sender: FDA-Public Use
  Company Number: US-SA-2014SA145100

PATIENT
  Age: 64 Year
  Sex: Female

DRUGS (2)
  1. AUBAGIO [Suspect]
     Active Substance: TERIFLUNOMIDE
     Indication: MULTIPLE SCLEROSIS
     Route: 048
     Dates: start: 20141013
  2. NUVIGIL [Concomitant]
     Active Substance: ARMODAFINIL

REACTIONS (14)
  - Feeling abnormal [Unknown]
  - Diarrhoea [Recovering/Resolving]
  - Eye operation [Unknown]
  - Cataract [Unknown]
  - Mental impairment [Unknown]
  - Herpes ophthalmic [Unknown]
  - Throat irritation [Unknown]
  - Constipation [Unknown]
  - Productive cough [Unknown]
  - Somnolence [Unknown]
  - Cough [Unknown]
  - Nausea [Recovering/Resolving]
  - Sinusitis [Unknown]
  - Fatigue [Not Recovered/Not Resolved]

NARRATIVE: CASE EVENT DATE: 2014
